FAERS Safety Report 14916848 (Version 2)
Quarter: 2018Q2

REPORT INFORMATION
  Report Type: Spontaneous
  Country: US (occurrence: US)
  Receive Date: 20180520
  Receipt Date: 20180620
  Transmission Date: 20180711
  Serious: Yes (Hospitalization, Other)
  Sender: FDA-Public Use
  Company Number: US-JNJFOC-20180503045

PATIENT
  Age: 61 Year
  Sex: Male
  Weight: 120.2 kg

DRUGS (1)
  1. INVOKANA [Suspect]
     Active Substance: CANAGLIFLOZIN
     Indication: DIABETES MELLITUS
     Route: 048
     Dates: start: 20150211, end: 201506

REACTIONS (1)
  - End stage renal disease [Unknown]

NARRATIVE: CASE EVENT DATE: 201804
